FAERS Safety Report 12187301 (Version 1)
Quarter: 2016Q1

REPORT INFORMATION
  Report Type: Spontaneous
  Country: US (occurrence: US)
  Receive Date: 20160317
  Receipt Date: 20160317
  Transmission Date: 20160526
  Serious: No
  Sender: FDA-Public Use
  Company Number: US-ENDO PHARMACEUTICALS INC.-2015-000626

PATIENT
  Sex: Female

DRUGS (1)
  1. PRIMIDONE TABLETS 50MG [Suspect]
     Active Substance: PRIMIDONE
     Indication: ESSENTIAL TREMOR
     Route: 065

REACTIONS (3)
  - Somnolence [Unknown]
  - Activities of daily living impaired [Unknown]
  - Mental impairment [Unknown]
